FAERS Safety Report 7136144-3 (Version None)
Quarter: 2010Q4

REPORT INFORMATION
  Report Type: 
  Country: None (occurrence: None)
  Receive Date: 20101205
  Receipt Date: 20101111
  Transmission Date: 20110411
  Serious: Yes (Death)
  Sender: FDA-Public Use
  Company Number: IE-AMGEN-IRLSP2010005382

PATIENT

DRUGS (11)
  1. ENBREL [Suspect]
     Indication: RHEUMATOID ARTHRITIS
     Dosage: UNK
  2. SULPHASALAZINE [Concomitant]
     Dosage: 1.5 G, 2X/DAY
  3. HYDROXYCHLOROQUINE SULFATE [Concomitant]
     Dosage: 400 MG, 1X/DAY
  4. ELTROXIN [Concomitant]
     Dosage: 100 UG, 1X/DAY
  5. ALENDRONATE SODIUM [Concomitant]
     Dosage: 70 MG, WEEKLY ON A SATURDAY
  6. SEROQUEL [Concomitant]
     Dosage: 75 MG NOCTE, 200 MG MANE
  7. PROTIUM [Concomitant]
     Dosage: 40 MG, 1X/DAY
  8. VALODEX [Concomitant]
     Dosage: 50 MG NOCTE UNKNOWN
  9. RITUXIMAB [Concomitant]
     Dosage: 1000 MG, UNK
     Dates: start: 20091130
  10. RITUXIMAB [Concomitant]
     Dosage: 1000 MG, UNK
     Dates: start: 20100107
  11. PREDNISOLONE [Concomitant]
     Dosage: 15 MG, 1X/DAY

REACTIONS (1)
  - COMPLETED SUICIDE [None]
